FAERS Safety Report 7280085-8 (Version None)
Quarter: 2011Q1

REPORT INFORMATION
  Report Type: 
  Country: None (occurrence: None)
  Receive Date: 20110208
  Receipt Date: 20110204
  Transmission Date: 20110831
  Serious: Yes (Hospitalization)
  Sender: FDA-Public Use
  Company Number: US-BRISTOL-MYERS SQUIBB COMPANY-15519192

PATIENT
  Age: 16 Year
  Sex: Male

DRUGS (3)
  1. ARIPIPRAZOLE [Suspect]
     Indication: BIPOLAR DISORDER
     Dosage: INITIAL DOSE:5MG
     Dates: start: 20030101
  2. CAFFEINE [Interacting]
     Dosage: 1 DF = APPROXIMATELY 1.6G
  3. FLUOXETINE [Interacting]
     Indication: BIPOLAR DISORDER
     Dates: start: 20030101

REACTIONS (3)
  - DRUG RASH WITH EOSINOPHILIA AND SYSTEMIC SYMPTOMS [None]
  - RHABDOMYOLYSIS [None]
  - DRUG INTERACTION [None]
